FAERS Safety Report 5311524-7 (Version None)
Quarter: 2007Q2

REPORT INFORMATION
  Report Type: 
  Country: None (occurrence: None)
  Receive Date: 20070430
  Receipt Date: 20070420
  Transmission Date: 20071010
  Serious: Yes (Other)
  Sender: FDA-Public Use
  Company Number: IE-GLAXOSMITHKLINE-B0464497A

PATIENT
  Age: 68 Year
  Sex: Male
  Weight: 80 kg

DRUGS (1)
  1. ARIXTRA [Suspect]
     Indication: PROPHYLAXIS
     Route: 058
     Dates: start: 20070316, end: 20070316

REACTIONS (3)
  - CHEST PAIN [None]
  - DYSPNOEA [None]
  - PULMONARY EMBOLISM [None]
